APPROVED DRUG PRODUCT: A/T/S
Active Ingredient: ERYTHROMYCIN
Strength: 2%
Dosage Form/Route: SOLUTION;TOPICAL
Application: A062405 | Product #001
Applicant: TARO PHARMACEUTICALS USA INC
Approved: Nov 18, 1982 | RLD: No | RS: No | Type: DISCN